FAERS Safety Report 8514308-1 (Version None)
Quarter: 2012Q3

REPORT INFORMATION
  Report Type: 
  Country: None (occurrence: None)
  Receive Date: 20120717
  Receipt Date: 20120704
  Transmission Date: 20120928
  Serious: Yes (Other)
  Sender: FDA-Public Use
  Company Number: DK-JNJFOC-20120706750

PATIENT
  Age: 74 Year
  Sex: Male

DRUGS (4)
  1. WARFARIN SODIUM [Interacting]
     Indication: ANTICOAGULANT THERAPY
  2. TRAMADOL HCL [Suspect]
     Indication: BACK PAIN
     Route: 065
  3. IBUPROFEN [Interacting]
     Route: 065
  4. IBUPROFEN [Interacting]
     Indication: BACK PAIN
     Route: 065

REACTIONS (2)
  - INTERNATIONAL NORMALISED RATIO INCREASED [None]
  - DRUG INTERACTION [None]
